FAERS Safety Report 7928239-9 (Version None)
Quarter: 2011Q4

REPORT INFORMATION
  Report Type: 
  Country: None (occurrence: None)
  Receive Date: 20111118
  Receipt Date: 20111115
  Transmission Date: 20120403
  Serious: Yes (Hospitalization)
  Sender: FDA-Public Use
  Company Number: US-ABBOTT-11P-163-0871316-00

PATIENT
  Sex: Male

DRUGS (3)
  1. HUMIRA [Suspect]
     Indication: RHEUMATOID ARTHRITIS
     Route: 058
     Dates: start: 20101214
  2. UNKNOWN BLOOD PRESSURE MEICATION [Concomitant]
  3. UNKNOWN 16 OTHER MEDICATIONS [Concomitant]

REACTIONS (1)
  - BLOOD POTASSIUM INCREASED [None]
